FAERS Safety Report 17790874 (Version 1)
Quarter: 2020Q2

REPORT INFORMATION
  Report Type: Spontaneous
  Country: US (occurrence: US)
  Receive Date: 20200514
  Receipt Date: 20200514
  Transmission Date: 20200714
  Serious: Yes (Death)
  Sender: FDA-Public Use
  Company Number: None

PATIENT
  Age: 61 Year
  Sex: Male

DRUGS (1)
  1. MEGESTROL AC 400MG/M [Suspect]
     Active Substance: MEGESTROL ACETATE
     Indication: DECREASED APPETITE
     Route: 048

REACTIONS (1)
  - Death [None]
